FAERS Safety Report 17031252 (Version 1)
Quarter: 2019Q4

REPORT INFORMATION
  Report Type: Spontaneous
  Country: US (occurrence: US)
  Receive Date: 20191114
  Receipt Date: 20191114
  Transmission Date: 20200122
  Serious: No
  Sender: FDA-Public Use
  Company Number: US-009507513-1910USA012377

PATIENT
  Age: 24 Year
  Sex: Female
  Weight: 67.42 kg

DRUGS (1)
  1. NEXPLANON [Suspect]
     Active Substance: ETONOGESTREL
     Dosage: 1 IMPLANT
     Route: 059
     Dates: start: 201808, end: 20191007

REACTIONS (4)
  - Device deployment issue [Recovered/Resolved]
  - Vaginal haemorrhage [Unknown]
  - Pruritus [Unknown]
  - Complication of device removal [Recovered/Resolved]
